FAERS Safety Report 21349777 (Version 1)
Quarter: 2022Q3

REPORT INFORMATION
  Report Type: Spontaneous
  Country: CA (occurrence: CA)
  Receive Date: 20220919
  Receipt Date: 20220919
  Transmission Date: 20221026
  Serious: Yes (Hospitalization, Other)
  Sender: FDA-Public Use
  Company Number: CA-TRIS PHARMA, INC.-22CA010407

PATIENT

DRUGS (2)
  1. MORPHINE SULFATE [Suspect]
     Active Substance: MORPHINE SULFATE
     Indication: Product used for unknown indication
     Dosage: 3 MILLIGRAM
  2. MORPHINE SULFATE [Suspect]
     Active Substance: MORPHINE SULFATE
     Dosage: 0.3 MILLILITRE (10 MG/ML)
     Route: 048

REACTIONS (3)
  - Toxic leukoencephalopathy [Not Recovered/Not Resolved]
  - Overdose [Unknown]
  - Off label use [Unknown]
